FAERS Safety Report 16141091 (Version 1)
Quarter: 2019Q2

REPORT INFORMATION
  Report Type: Spontaneous
  Country: US (occurrence: US)
  Receive Date: 20190401
  Receipt Date: 20190401
  Transmission Date: 20190711
  Serious: No
  Sender: FDA-Public Use
  Company Number: US-PFIZER INC-2018381458

PATIENT
  Age: 12 Year
  Sex: Male

DRUGS (4)
  1. GENOTROPIN [Suspect]
     Active Substance: SOMATROPIN
     Dosage: 2.6 MG, DAILY (6 DAYS A WEEK)
     Dates: start: 201606
  2. GENOTROPIN [Suspect]
     Active Substance: SOMATROPIN
     Dosage: 2 MG, NIGHTLY
  3. GENOTROPIN [Suspect]
     Active Substance: SOMATROPIN
     Dosage: 5.2 MG (TWICE HIS DOSE FOR 2 WEEKS BY MISTAKE)
  4. GENOTROPIN [Suspect]
     Active Substance: SOMATROPIN
     Dosage: 3.8 MG, 6 DAYS A WEEK
     Dates: start: 20160612

REACTIONS (4)
  - Product dose omission [Unknown]
  - Intentional product use issue [Unknown]
  - Extra dose administered [Unknown]
  - Malaise [Unknown]
